FAERS Safety Report 10244793 (Version 1)
Quarter: 2014Q2

REPORT INFORMATION
  Report Type: Spontaneous
  Country: FR (occurrence: FR)
  Receive Date: 20140618
  Receipt Date: 20140618
  Transmission Date: 20141212
  Serious: Yes (Other)
  Sender: FDA-Public Use
  Company Number: FR-TEVA-488561ISR

PATIENT
  Age: 44 Year
  Sex: Male

DRUGS (1)
  1. COPAXONE [Suspect]
     Dosage: WITH THE AUTOJECT AT 8 MM
     Route: 058
     Dates: start: 20131017

REACTIONS (3)
  - Multiple sclerosis relapse [Unknown]
  - Muscle disorder [Unknown]
  - Injection site haematoma [Recovered/Resolved]
